FAERS Safety Report 4675500-X (Version None)
Quarter: 2005Q2

REPORT INFORMATION
  Report Type: 
  Country: None (occurrence: None)
  Receive Date: 20050527
  Receipt Date: 20050324
  Transmission Date: 20051028
  Serious: No
  Sender: FDA-Public Use
  Company Number: US-BRISTOL-MYERS SQUIBB COMPANY-12910774

PATIENT
  Age: 7 Year

DRUGS (2)
  1. ABILIFY [Suspect]
  2. LAMOTRIGINE [Concomitant]

REACTIONS (1)
  - ELECTROENCEPHALOGRAM ABNORMAL [None]
